FAERS Safety Report 8596493-9 (Version None)
Quarter: 2012Q3

REPORT INFORMATION
  Report Type: 
  Country: None (occurrence: None)
  Receive Date: 20120806
  Receipt Date: 20120806
  Transmission Date: 20120928
  Serious: Yes (Other)
  Sender: FDA-Public Use
  Company Number: None

PATIENT
  Age: 49 Year
  Sex: Female
  Weight: 58.0604 kg

DRUGS (2)
  1. BONIVA [Suspect]
     Indication: OSTEOPOROSIS
     Dosage: JUST THE ONE DOSE IN MAY
     Dates: start: 20120529, end: 20120529
  2. BONIVA [Suspect]
     Indication: OSTEOPENIA
     Dosage: JUST THE ONE DOSE IN MAY
     Dates: start: 20120529, end: 20120529

REACTIONS (15)
  - MUSCULOSKELETAL CHEST PAIN [None]
  - MUSCLE SPASMS [None]
  - ABDOMINAL DISCOMFORT [None]
  - DYSSTASIA [None]
  - HEADACHE [None]
  - NERVE COMPRESSION [None]
  - MUSCULOSKELETAL PAIN [None]
  - CHEST PAIN [None]
  - ACTIVITIES OF DAILY LIVING IMPAIRED [None]
  - INFLUENZA LIKE ILLNESS [None]
  - BACK PAIN [None]
  - PAIN IN JAW [None]
  - UNEVALUABLE EVENT [None]
  - DRY MOUTH [None]
  - ORAL PAIN [None]
